FAERS Safety Report 14201428 (Version 1)
Quarter: 2017Q4

REPORT INFORMATION
  Report Type: Spontaneous
  Country: US (occurrence: US)
  Receive Date: 20171117
  Receipt Date: 20171117
  Transmission Date: 20180321
  Serious: No
  Sender: FDA-Public Use
  Company Number: US-PERRIGO-17US003748

PATIENT
  Age: 81 Year
  Sex: Female
  Weight: 56.69 kg

DRUGS (6)
  1. METAMUCIL [Concomitant]
     Active Substance: PLANTAGO SEED
     Indication: SUPPLEMENTATION THERAPY
     Dosage: UNK
     Route: 048
  2. POLYETHYLENE GLYCOL 3350. [Suspect]
     Active Substance: POLYETHYLENE GLYCOL 3350
     Indication: BOWEL MOVEMENT IRREGULARITY
     Dosage: 4.25 G, QD
     Route: 048
     Dates: start: 201612
  3. CALCIUM [Concomitant]
     Active Substance: CALCIUM
     Indication: SUPPLEMENTATION THERAPY
     Dosage: UNK
     Route: 048
  4. SIMVASTATIN. [Concomitant]
     Active Substance: SIMVASTATIN
     Indication: BLOOD CHOLESTEROL INCREASED
     Dosage: 20 MG, UNKNOWN
     Route: 048
  5. AMITRIPTYLINE [Concomitant]
     Active Substance: AMITRIPTYLINE
     Indication: DEPRESSION
     Dosage: 10 MG, UNKNOWN
     Route: 048
  6. FISH OIL [Concomitant]
     Active Substance: FISH OIL
     Indication: SUPPLEMENTATION THERAPY
     Dosage: UNK
     Route: 048

REACTIONS (3)
  - Underdose [Unknown]
  - Faeces discoloured [Unknown]
  - Incorrect drug administration duration [Unknown]

NARRATIVE: CASE EVENT DATE: 201612
